FAERS Safety Report 4661538-5 (Version None)
Quarter: 2005Q2

REPORT INFORMATION
  Report Type: 
  Country: None (occurrence: None)
  Receive Date: 20050511
  Receipt Date: 20050511
  Transmission Date: 20051028
  Serious: No
  Sender: FDA-Public Use
  Company Number: None

PATIENT
  Sex: Male
  Weight: 80.9 kg

DRUGS (4)
  1. KETOCONAZOLE [Suspect]
     Dosage: 400 MG TID PO
     Route: 048
     Dates: start: 20050210
  2. ADRIAMYCIN PFS [Suspect]
     Dosage: 40 MG IV WEEKY EVERY OTHER WEEK (WEEK 1,3 + 5)
     Route: 042
  3. VINBLASTINE SULFATE [Suspect]
     Dosage: 8 MG IV WEEKLY EVERY OTHR WEEK (WEEKS 2, 4, +6)
     Route: 042
  4. ESTRAMUSTINE [Suspect]
     Dosage: 140 MG PO TID
     Route: 048

REACTIONS (2)
  - DIZZINESS [None]
  - PULMONARY EMBOLISM [None]
